FAERS Safety Report 22221336 (Version 2)
Quarter: 2023Q2

REPORT INFORMATION
  Report Type: Spontaneous
  Country: US (occurrence: US)
  Receive Date: 20230418
  Receipt Date: 20230421
  Transmission Date: 20230722
  Serious: No
  Sender: FDA-Public Use
  Company Number: US-002147023-NVSC2023US087989

PATIENT
  Sex: Male

DRUGS (1)
  1. NEVANAC [Suspect]
     Active Substance: NEPAFENAC
     Indication: Cataract operation
     Dosage: 1 DRP, RT EYE, BID
     Route: 047

REACTIONS (2)
  - Retinal disorder [Unknown]
  - Product dose omission issue [Unknown]
